FAERS Safety Report 17504096 (Version 2)
Quarter: 2020Q2

REPORT INFORMATION
  Report Type: Spontaneous
  Country: ES (occurrence: ES)
  Receive Date: 20200305
  Receipt Date: 20200507
  Transmission Date: 20200713
  Serious: Yes (Other)
  Sender: FDA-Public Use
  Company Number: ES-MYLANLABS-2020M1023748

PATIENT
  Age: 49 Year
  Sex: Female
  Weight: 69 kg

DRUGS (10)
  1. AMITRIPTYLINE [Concomitant]
     Active Substance: AMITRIPTYLINE
     Dosage: UNK
  2. XELODA [Concomitant]
     Active Substance: CAPECITABINE
     Dosage: UNK
     Route: 048
  3. PREDNISONE. [Concomitant]
     Active Substance: PREDNISONE
     Dosage: UNK
  4. FORTASEC                           /00384301/ [Concomitant]
     Active Substance: LOPERAMIDE
     Dosage: UNK
  5. TRASTUZUMAB. [Suspect]
     Active Substance: TRASTUZUMAB
     Indication: BREAST NEOPLASM
     Dosage: UNK
     Route: 065
  6. HERCEPTIN [Suspect]
     Active Substance: TRASTUZUMAB
     Indication: BREAST NEOPLASM
     Dosage: UNK
     Route: 065
  7. LAPATINIB [Suspect]
     Active Substance: LAPATINIB
     Indication: BREAST NEOPLASM
     Dosage: UNK
     Route: 065
  8. CAPECITABINE. [Suspect]
     Active Substance: CAPECITABINE
     Indication: BREAST NEOPLASM
     Dosage: UNK
     Route: 048
  9. PRIMPERAN [Concomitant]
     Active Substance: METOCLOPRAMIDE HYDROCHLORIDE
     Dosage: UNK
  10. PERTUZUMAB. [Concomitant]
     Active Substance: PERTUZUMAB
     Dosage: UNK
     Route: 065

REACTIONS (9)
  - Disease recurrence [Unknown]
  - Muscle contracture [Unknown]
  - Toxicity to various agents [Unknown]
  - Disease progression [Unknown]
  - Headache [Unknown]
  - Neoplasm progression [Unknown]
  - Skin toxicity [Unknown]
  - Radiation pneumonitis [Unknown]
  - Neoplasm recurrence [Unknown]

NARRATIVE: CASE EVENT DATE: 201204
